FAERS Safety Report 4268888-5 (Version None)
Quarter: 2004Q1

REPORT INFORMATION
  Report Type: 
  Country: None (occurrence: None)
  Receive Date: 20040109
  Receipt Date: 20031223
  Transmission Date: 20041129
  Serious: Yes (Hospitalization)
  Sender: FDA-Public Use
  Company Number: SX03010087

PATIENT
  Age: 62 Year

DRUGS (1)
  1. XOPENEX [Suspect]
     Indication: ASTHMA
     Dosage: 1.25MG/3ML INHALATION
     Route: 055

REACTIONS (2)
  - ASTHENIA [None]
  - HYPOAESTHESIA [None]
